FAERS Safety Report 18956877 (Version 2)
Quarter: 2023Q4

REPORT INFORMATION
  Report Type: Spontaneous
  Country: FR (occurrence: FR)
  Receive Date: 20210302
  Receipt Date: 20231206
  Transmission Date: 20240109
  Serious: Yes (Hospitalization)
  Sender: FDA-Public Use
  Company Number: None

PATIENT
  Age: 72 Year
  Sex: Female
  Weight: 74 kg

DRUGS (8)
  1. METFORMIN [Suspect]
     Active Substance: METFORMIN HYDROCHLORIDE
     Indication: Type 2 diabetes mellitus
     Route: 048
     Dates: end: 20210122
  2. JANUVIA [Suspect]
     Active Substance: SITAGLIPTIN PHOSPHATE
     Indication: Type 2 diabetes mellitus
     Route: 048
     Dates: start: 201606, end: 20210122
  3. FEBUXOSTAT [Suspect]
     Active Substance: FEBUXOSTAT
     Indication: Product used for unknown indication
     Route: 048
     Dates: start: 201606, end: 20210122
  4. HERBALS\VITIS VINIFERA LEAF [Suspect]
     Active Substance: HERBALS\VITIS VINIFERA LEAF
     Indication: Product used for unknown indication
     Route: 048
     Dates: end: 20210122
  5. PRADAXA [Suspect]
     Active Substance: DABIGATRAN ETEXILATE MESYLATE
     Indication: Atrial fibrillation
     Route: 048
     Dates: start: 201901, end: 20210122
  6. PRAVASTATIN SODIUM [Suspect]
     Active Substance: PRAVASTATIN SODIUM
     Indication: Dyslipidaemia
     Route: 048
     Dates: start: 201610, end: 20210122
  7. LEVOTHYROXINE [Concomitant]
     Active Substance: LEVOTHYROXINE
     Indication: Hypothyroidism
     Route: 048
  8. FLECAINIDE [Concomitant]
     Active Substance: FLECAINIDE
     Indication: Product used for unknown indication
     Dosage: SUSTAINED RELEASE
     Route: 048
     Dates: start: 201901

REACTIONS (2)
  - Tubulointerstitial nephritis [Recovered/Resolved]
  - Mixed liver injury [Recovered/Resolved]

NARRATIVE: CASE EVENT DATE: 20210121
